FAERS Safety Report 19609823 (Version 3)
Quarter: 2021Q3

REPORT INFORMATION
  Report Type: Spontaneous
  Country: JP (occurrence: JP)
  Receive Date: 20210726
  Receipt Date: 20210818
  Transmission Date: 20211014
  Serious: Yes (Hospitalization)
  Sender: FDA-Public Use
  Company Number: JP-CELGENEUS-JPN-20210703717

PATIENT
  Age: 77 Year
  Sex: Female

DRUGS (3)
  1. VIDAZA [Suspect]
     Active Substance: AZACITIDINE
     Indication: ACUTE MYELOID LEUKAEMIA
     Dosage: 110 MILLIGRAM
     Route: 058
     Dates: start: 20210712, end: 20210713
  2. VENCLEXTA [Suspect]
     Active Substance: VENETOCLAX
     Indication: ACUTE MYELOID LEUKAEMIA
     Dosage: 110100 MILLIGRAM
     Route: 048
     Dates: start: 20210712, end: 20210713
  3. VENCLEXTA [Suspect]
     Active Substance: VENETOCLAX
     Dosage: 110100 MILLIGRAM
     Route: 048
     Dates: start: 20210726

REACTIONS (3)
  - Renal disorder [Recovered/Resolved]
  - Tumour lysis syndrome [Recovered/Resolved]
  - Blood lactate dehydrogenase increased [Recovered/Resolved]

NARRATIVE: CASE EVENT DATE: 20210712
